FAERS Safety Report 13366338 (Version 1)
Quarter: 2017Q1

REPORT INFORMATION
  Report Type: Spontaneous
  Country: PR (occurrence: PR)
  Receive Date: 20170323
  Receipt Date: 20170323
  Transmission Date: 20170429
  Serious: No
  Sender: FDA-Public Use
  Company Number: PR-WELLSTAT THERAPEUTICS CORPORATION-1064594

PATIENT
  Age: 14 Month
  Sex: Female
  Weight: 10.4 kg

DRUGS (4)
  1. FOLIC ACID. [Concomitant]
     Active Substance: FOLIC ACID
  2. XURIDEN [Suspect]
     Active Substance: URIDINE TRIACETATE
     Indication: OROTICACIDURIA CONGENITAL
     Route: 048
     Dates: start: 20160628
  3. IMURAN [Concomitant]
     Active Substance: AZATHIOPRINE
  4. VITAMIN B12 [Concomitant]
     Active Substance: CYANOCOBALAMIN

REACTIONS (2)
  - Off label use [None]
  - Weight gain poor [Recovered/Resolved]

NARRATIVE: CASE EVENT DATE: 20160628
